FAERS Safety Report 6723744-5 (Version None)
Quarter: 2010Q2

REPORT INFORMATION
  Report Type: 
  Country: None (occurrence: None)
  Receive Date: 20100513
  Receipt Date: 20100504
  Transmission Date: 20101027
  Serious: Yes (Other)
  Sender: FDA-Public Use
  Company Number: US-JNJFOC-20100401143

PATIENT
  Sex: Female

DRUGS (3)
  1. LEVAQUIN [Suspect]
     Indication: COUGH
     Route: 048
  2. LEVAQUIN [Suspect]
     Indication: RESPIRATORY TRACT CONGESTION
     Route: 048
  3. PREDNISONE [Concomitant]
     Route: 065

REACTIONS (6)
  - ARTHRALGIA [None]
  - DEPRESSION [None]
  - DIZZINESS [None]
  - DRUG INEFFECTIVE [None]
  - MENISCUS LESION [None]
  - TENDON PAIN [None]
